FAERS Safety Report 17243627 (Version 1)
Quarter: 2020Q1

REPORT INFORMATION
  Report Type: Spontaneous
  Country: US (occurrence: US)
  Receive Date: 20200107
  Receipt Date: 20200107
  Transmission Date: 20200409
  Serious: Yes (Death, Hospitalization)
  Sender: FDA-Public Use
  Company Number: US-BAYER-2020-001273

PATIENT
  Age: 14 Year
  Sex: Female

DRUGS (6)
  1. CIPROFLOXACIN. [Suspect]
     Active Substance: CIPROFLOXACIN
     Dosage: UNK
     Route: 048
  2. LISINOPRIL. [Suspect]
     Active Substance: LISINOPRIL
  3. MELOXICAM. [Suspect]
     Active Substance: MELOXICAM
  4. TIZANIDINE. [Suspect]
     Active Substance: TIZANIDINE
  5. IRON [Suspect]
     Active Substance: IRON
  6. COLCHICINE. [Suspect]
     Active Substance: COLCHICINE

REACTIONS (2)
  - Toxicity to various agents [Fatal]
  - Completed suicide [Fatal]
